FAERS Safety Report 25151500 (Version 1)
Quarter: 2025Q2

REPORT INFORMATION
  Report Type: Spontaneous
  Country: US (occurrence: US)
  Receive Date: 20250402
  Receipt Date: 20250402
  Transmission Date: 20250717
  Serious: No
  Sender: BIOLINERX
  Company Number: US-MIMS-BIOLMC-813

PATIENT
  Age: 20 Year
  Sex: Female

DRUGS (1)
  1. APHEXDA [Suspect]
     Active Substance: MOTIXAFORTIDE ACETATE
     Indication: Product used for unknown indication
     Route: 065

REACTIONS (4)
  - Swelling face [Recovered/Resolved]
  - Urticaria [Recovering/Resolving]
  - Pruritus [Unknown]
  - White blood cell count increased [Unknown]
